FAERS Safety Report 21402229 (Version 1)
Quarter: 2022Q4

REPORT INFORMATION
  Report Type: Spontaneous
  Country: CN (occurrence: CN)
  Receive Date: 20221003
  Receipt Date: 20221003
  Transmission Date: 20230112
  Serious: Yes (Hospitalization, Other)
  Sender: FDA-Public Use
  Company Number: CN-SA-SAC20220930000694

PATIENT
  Age: 68 Year
  Sex: Male
  Weight: 59 kg

DRUGS (7)
  1. OXALIPLATIN [Suspect]
     Active Substance: OXALIPLATIN
     Indication: Colon cancer
     Dosage: 100 UG, QD
     Route: 041
     Dates: start: 20220906, end: 20220907
  2. FLUOROURACIL [Suspect]
     Active Substance: FLUOROURACIL
     Indication: Colon cancer
     Dosage: 2 G, QD
     Route: 041
     Dates: start: 20220906, end: 20220907
  3. IRINOTECAN [Suspect]
     Active Substance: IRINOTECAN
     Indication: Colon cancer
     Dosage: 200 UG, QD
     Route: 041
     Dates: start: 20220906, end: 20220907
  4. LEUCOVORIN CALCIUM [Suspect]
     Active Substance: LEUCOVORIN CALCIUM
     Indication: Colon cancer
     Dosage: 0.6 G, QD
     Route: 041
     Dates: start: 20220906, end: 20220907
  5. SODIUM CHLORIDE [Concomitant]
     Active Substance: SODIUM CHLORIDE
     Indication: Vehicle solution use
     Dosage: 50 ML
     Dates: start: 20220906, end: 20220907
  6. CEFOPERAZONE SODIUM [Concomitant]
     Active Substance: CEFOPERAZONE SODIUM
     Indication: Anti-infective therapy
     Dosage: UNK UNK, Q8H
     Route: 041
     Dates: start: 202209
  7. SULBACTAM SODIUM [Concomitant]
     Active Substance: SULBACTAM SODIUM
     Indication: Anti-infective therapy
     Dosage: 2 G, Q8H
     Route: 041
     Dates: start: 202209

REACTIONS (1)
  - Agranulocytosis [Recovering/Resolving]

NARRATIVE: CASE EVENT DATE: 20220912
